FAERS Safety Report 6079647-5 (Version None)
Quarter: 2009Q1

REPORT INFORMATION
  Report Type: 
  Country: None (occurrence: None)
  Receive Date: 20090211
  Receipt Date: 20090203
  Transmission Date: 20090719
  Serious: Yes (Life-Threatening, Other)
  Sender: FDA-Public Use
  Company Number: THYR-1000111

PATIENT
  Age: 61 Year
  Sex: Female

DRUGS (3)
  1. THYROGEN [Suspect]
     Indication: SCAN THYROID GLAND
     Dosage: 0.9 MG, QD, INTRAMUSCULAR
     Route: 030
     Dates: start: 20080407, end: 20080408
  2. PREVISCAN (FLUINDIONE) TABLET [Concomitant]
  3. LEVOTHYROXINE SODIUM [Concomitant]

REACTIONS (6)
  - ANTIPHOSPHOLIPID ANTIBODIES POSITIVE [None]
  - BETA-2 GLYCOPROTEIN ANTIBODY POSITIVE [None]
  - CARDIOLIPIN ANTIBODY POSITIVE [None]
  - DEEP VEIN THROMBOSIS [None]
  - INTERNATIONAL NORMALISED RATIO INCREASED [None]
  - THROMBOPHLEBITIS [None]
